FAERS Safety Report 7689052-3 (Version None)
Quarter: 2011Q3

REPORT INFORMATION
  Report Type: 
  Country: None (occurrence: None)
  Receive Date: 20110817
  Receipt Date: 20100629
  Transmission Date: 20111222
  Serious: Yes (Other)
  Sender: FDA-Public Use
  Company Number: US-PFIZER INC-2010072419

PATIENT
  Sex: Female
  Weight: 108.84 kg

DRUGS (3)
  1. CHANTIX [Suspect]
     Indication: SMOKING CESSATION THERAPY
     Dosage: 0.5 MG, 1X/DAY
     Route: 048
     Dates: start: 20100607
  2. STELAZINE [Concomitant]
     Indication: PSYCHOTIC DISORDER
     Dosage: UNK
  3. LISINOPRIL [Concomitant]
     Indication: HYPERTENSION
     Dosage: UNK

REACTIONS (16)
  - DEPRESSED MOOD [None]
  - COUGH [None]
  - HEADACHE [None]
  - VOMITING [None]
  - FATIGUE [None]
  - LETHARGY [None]
  - MUSCULOSKELETAL PAIN [None]
  - FEELING GUILTY [None]
  - MEMORY IMPAIRMENT [None]
  - INSOMNIA [None]
  - JUDGEMENT IMPAIRED [None]
  - FRUSTRATION [None]
  - FEELING ABNORMAL [None]
  - EMOTIONAL DISORDER [None]
  - CONFUSIONAL STATE [None]
  - PARAESTHESIA [None]
